FAERS Safety Report 9991185 (Version 1)
Quarter: 2014Q1

REPORT INFORMATION
  Report Type: Report from Study
  Country: US (occurrence: US)
  Receive Date: 20140310
  Receipt Date: 20140310
  Transmission Date: 20141002
  Serious: No
  Sender: FDA-Public Use
  Company Number: US-ABBVIE-13P-163-1129933-00

PATIENT
  Sex: Male

DRUGS (5)
  1. HUMIRA [Suspect]
     Indication: PSORIASIS
     Dates: start: 20130418
  2. ARTHRITIS PILL [Concomitant]
     Indication: PAIN
     Dosage: DAILY
  3. BLOOD PRESSURE PILL [Concomitant]
     Indication: BLOOD PRESSURE
  4. HIGH CHOLESTEROL PILL [Concomitant]
     Indication: BLOOD CHOLESTEROL INCREASED
  5. PAIN PILL [Concomitant]
     Indication: PAIN
     Dosage: ONLY TAKEN WHEN HE CAN^T TAKE THE PAIN ANYMORE

REACTIONS (5)
  - Peripheral arterial occlusive disease [Unknown]
  - Poor peripheral circulation [Unknown]
  - Pain in extremity [Not Recovered/Not Resolved]
  - Back pain [Unknown]
  - Back pain [Unknown]
